FAERS Safety Report 7310657-3 (Version None)
Quarter: 2011Q1

REPORT INFORMATION
  Report Type: 
  Country: None (occurrence: None)
  Receive Date: 20110224
  Receipt Date: 20110211
  Transmission Date: 20110831
  Serious: Yes (Hospitalization)
  Sender: FDA-Public Use
  Company Number: IT-SANOFI-AVENTIS-2011SA006971

PATIENT
  Age: 74 Year
  Sex: Female

DRUGS (8)
  1. CLEXANE [Suspect]
     Route: 058
     Dates: start: 20101201, end: 20101214
  2. VENLAFAXINE [Concomitant]
     Route: 048
  3. GLYCERYL TRINITRATE [Concomitant]
     Route: 062
  4. ALDACTONE [Concomitant]
     Route: 048
  5. TRIATEC [Concomitant]
     Route: 048
  6. LASIX [Concomitant]
     Route: 048
  7. CLOPIXOL [Concomitant]
     Route: 048
  8. LOBIVON [Concomitant]
     Route: 048

REACTIONS (4)
  - SHOCK HAEMORRHAGIC [None]
  - MELAENA [None]
  - ANAEMIA [None]
  - EROSIVE OESOPHAGITIS [None]
